FAERS Safety Report 4733339-0 (Version None)
Quarter: 2005Q3

REPORT INFORMATION
  Report Type: 
  Country: None (occurrence: None)
  Receive Date: 20050801
  Receipt Date: 20050801
  Transmission Date: 20060218
  Serious: Yes (Hospitalization)
  Sender: FDA-Public Use
  Company Number: None

PATIENT
  Age: 74 Year
  Sex: Male

DRUGS (9)
  1. FOSINOPRIL SODIUM [Suspect]
     Indication: HYPERTENSION
     Dosage: 40 MG QD
     Dates: start: 19990205
  2. IBUPROFEN [Suspect]
     Indication: PAIN
     Dosage: 600 MG Q8 H
     Dates: start: 20030331
  3. SPIRONOLACTONE [Suspect]
     Indication: HYPERTENSION
     Dosage: 25 MG QD
     Dates: start: 19990205
  4. LORTAD [Concomitant]
  5. CARVEDILOL [Concomitant]
  6. HYDROCHLOROTHIAZIDE [Concomitant]
  7. AVANDIA [Concomitant]
  8. METFORMIN [Concomitant]
  9. ATORVASTATIN CALCIUM [Concomitant]

REACTIONS (2)
  - HYPERKALAEMIA [None]
  - RENAL FAILURE ACUTE [None]
